FAERS Safety Report 23570975 (Version 1)
Quarter: 2024Q1

REPORT INFORMATION
  Report Type: Spontaneous
  Country: US (occurrence: US)
  Receive Date: 20240227
  Receipt Date: 20240227
  Transmission Date: 20240410
  Serious: No
  Sender: FDA-Public Use
  Company Number: US-PFIZER INC-PV202400026626

PATIENT
  Age: 54 Year
  Sex: Male

DRUGS (1)
  1. BOSULIF [Suspect]
     Active Substance: BOSUTINIB MONOHYDRATE
     Dosage: 100 MG, 2X/DAY (EVERYDAY)

REACTIONS (3)
  - Product dose omission issue [Unknown]
  - Laboratory test abnormal [Unknown]
  - Off label use [Unknown]
